FAERS Safety Report 4465303-3 (Version None)
Quarter: 2004Q4

REPORT INFORMATION
  Report Type: 
  Country: None (occurrence: None)
  Receive Date: 20041004
  Receipt Date: 20040923
  Transmission Date: 20050328
  Serious: Yes (Other)
  Sender: FDA-Public Use
  Company Number: GB-BRISTOL-MYERS SQUIBB COMPANY-12709895

PATIENT
  Age: 69 Year

DRUGS (2)
  1. APROVEL TABS 75 MG [Suspect]
     Indication: BLOOD PRESSURE INCREASED
     Route: 048
     Dates: start: 20040812, end: 20040828
  2. UNKNOWN [Concomitant]

REACTIONS (1)
  - DERMATITIS BULLOUS [None]
